FAERS Safety Report 18282662 (Version 1)
Quarter: 2020Q3

REPORT INFORMATION
  Report Type: Spontaneous
  Country: CN (occurrence: CN)
  Receive Date: 20200918
  Receipt Date: 20200918
  Transmission Date: 20201103
  Serious: Yes (Other)
  Sender: FDA-Public Use
  Company Number: CN-BAXTER-2020BAX019040

PATIENT
  Age: 50 Year
  Sex: Female

DRUGS (8)
  1. ENDOXAN [Suspect]
     Active Substance: CYCLOPHOSPHAMIDE
     Dosage: DOSE RE?INTRODUCED, CYCLOPHOSPHAMIDE + 0.9% NS
     Route: 041
  2. ENDOXAN [Suspect]
     Active Substance: CYCLOPHOSPHAMIDE
     Indication: DIFFUSE LARGE B-CELL LYMPHOMA STAGE IV
     Dosage: MAINTENANCE CHEMOTHERAPY, CYCLOPHOSPHAMIDE 1100 MG + 0.9% NS 50 ML
     Route: 041
     Dates: start: 20200814, end: 20200814
  3. EPIRUBICIN HYDROCHLORIDE. [Suspect]
     Active Substance: EPIRUBICIN HYDROCHLORIDE
     Indication: DIFFUSE LARGE B-CELL LYMPHOMA STAGE IV
     Dosage: MAINTENANCE CHEMOTHERAPY, EPIRUBICIN HYDROCHLORIDE 130 MG + 0.9% NS 150 ML
     Route: 041
     Dates: start: 20200814, end: 20200814
  4. 0.9% SODIUM CHLORIDE INJECTION [Suspect]
     Active Substance: SODIUM CHLORIDE
     Dosage: DOSE RE?INTRODUCED, EPIRUBICIN HYDROCHLORIDE + 0.9% NS
     Route: 041
  5. 0.9% SODIUM CHLORIDE INJECTION [Suspect]
     Active Substance: SODIUM CHLORIDE
     Dosage: MAINTENANCE CHEMOTHERAPY, EPIRUBICIN HYDROCHLORIDE 130 MG + 0.9% NS 150 ML
     Route: 041
     Dates: start: 20200814, end: 20200814
  6. 0.9% SODIUM CHLORIDE INJECTION [Suspect]
     Active Substance: SODIUM CHLORIDE
     Indication: MEDICATION DILUTION
     Dosage: MAINTENANCE CHEMOTHERAPY, CYCLOPHOSPHAMIDE 1100 MG + 0.9% NS 50 ML
     Route: 041
     Dates: start: 20200814, end: 20200814
  7. 0.9% SODIUM CHLORIDE INJECTION [Suspect]
     Active Substance: SODIUM CHLORIDE
     Dosage: DOSE RE?INTRODUCED, CYCLOPHOSPHAMIDE + 0.9% NS
     Route: 041
  8. EPIRUBICIN HYDROCHLORIDE. [Suspect]
     Active Substance: EPIRUBICIN HYDROCHLORIDE
     Dosage: DOSE RE?INTRODUCED, EPIRUBICIN HYDROCHLORIDE + 0.9% NS
     Route: 041

REACTIONS (1)
  - Myelosuppression [Recovering/Resolving]

NARRATIVE: CASE EVENT DATE: 20200824
